FAERS Safety Report 15867057 (Version 2)
Quarter: 2019Q1

REPORT INFORMATION
  Report Type: Spontaneous
  Country: IT (occurrence: IT)
  Receive Date: 20190125
  Receipt Date: 20190202
  Transmission Date: 20190417
  Serious: Yes (Other)
  Sender: FDA-Public Use
  Company Number: IT-ROCHE-2252628

PATIENT
  Sex: Female

DRUGS (1)
  1. AVASTIN [Suspect]
     Active Substance: BEVACIZUMAB
     Indication: OVARIAN CANCER
     Dosage: MEDIUM DOSAGE FOR INFUSION 900MG
     Route: 042
     Dates: start: 20180215, end: 20181220

REACTIONS (2)
  - Gastric ulcer [Unknown]
  - Duodenal ulcer [Unknown]
